FAERS Safety Report 8547002-1 (Version None)
Quarter: 2012Q3

REPORT INFORMATION
  Report Type: 
  Country: None (occurrence: None)
  Receive Date: 20120727
  Receipt Date: 20120406
  Transmission Date: 20120928
  Serious: No
  Sender: FDA-Public Use
  Company Number: US-ASTRAZENECA-2012SE15952

PATIENT
  Age: 59 Year
  Sex: Female

DRUGS (6)
  1. SEROQUEL XR [Suspect]
     Indication: BIPOLAR DISORDER
     Route: 048
  2. SEROQUEL XR [Suspect]
     Indication: SLEEP DISORDER
     Route: 048
  3. SEROQUEL XR [Suspect]
     Route: 048
     Dates: start: 20120229
  4. LORAZEPAM [Concomitant]
     Indication: ANXIETY
  5. LAMICTAL [Concomitant]
     Indication: BIPOLAR DISORDER
  6. SEROQUEL XR [Suspect]
     Route: 048
     Dates: start: 20120229

REACTIONS (2)
  - FALL [None]
  - MIDDLE INSOMNIA [None]
